FAERS Safety Report 8975794 (Version 1)
Quarter: 2012Q4

REPORT INFORMATION
  Report Type: 
  Country: BE (occurrence: BE)
  Receive Date: 20121219
  Receipt Date: 20121219
  Transmission Date: 20130627
  Serious: Yes (Hospitalization)
  Sender: FDA-Public Use
  Company Number: PHHO2012BE000860

PATIENT
  Age: 3 Year
  Sex: Female
  Weight: 15.5 kg

DRUGS (3)
  1. ACZ885 [Suspect]
     Indication: JUVENILE ARTHRITIS
     Dosage: 4 mg/kg, every 4 weeks
     Route: 058
     Dates: start: 20100526
  2. FOLIC ACID [Concomitant]
     Indication: VITAMIN SUPPLEMENTATION
     Dosage: 4 mg, UNK
     Dates: start: 20090716
  3. METHOTREXATE [Concomitant]
     Indication: JUVENILE ARTHRITIS
     Dosage: 5 mg, UNK
     Dates: start: 20090911

REACTIONS (1)
  - Varicella [Recovered/Resolved]
